FAERS Safety Report 8424417-3 (Version None)
Quarter: 2012Q2

REPORT INFORMATION
  Report Type: 
  Country: None (occurrence: None)
  Receive Date: 20120608
  Receipt Date: 20110707
  Transmission Date: 20120825
  Serious: No
  Sender: FDA-Public Use
  Company Number: US-ASTRAZENECA-2011SE40605

PATIENT
  Age: 5 Year
  Sex: Female

DRUGS (3)
  1. PULMICORT [Suspect]
     Indication: ASTHMA
     Dosage: BID
     Route: 055
     Dates: start: 20100101, end: 20110101
  2. PULMICORT [Suspect]
     Route: 055
     Dates: start: 20110101
  3. ALBUTEROL [Concomitant]

REACTIONS (4)
  - COUGH [None]
  - INHALATION THERAPY [None]
  - ASTHMA [None]
  - NASOPHARYNGITIS [None]
